FAERS Safety Report 9270406 (Version 1)
Quarter: 2013Q2

REPORT INFORMATION
  Report Type: Spontaneous
  Country: CA (occurrence: CA)
  Receive Date: 20130503
  Receipt Date: 20130503
  Transmission Date: 20140414
  Serious: No
  Sender: FDA-Public Use
  Company Number: CA-009507513-1304CAN015381

PATIENT
  Sex: Male

DRUGS (1)
  1. INTRON A [Suspect]
     Indication: GORHAM^S DISEASE
     Dosage: 5.5 MILLION IU,
     Route: 048
     Dates: start: 201207

REACTIONS (1)
  - Hepatic enzyme increased [Unknown]
